FAERS Safety Report 7603623-1 (Version None)
Quarter: 2011Q3

REPORT INFORMATION
  Report Type: 
  Country: None (occurrence: None)
  Receive Date: 20110711
  Receipt Date: 20110711
  Transmission Date: 20111222
  Serious: Yes (Other)
  Sender: FDA-Public Use
  Company Number: None

PATIENT
  Age: 40 Year
  Sex: Female
  Weight: 63.5036 kg

DRUGS (2)
  1. CETIRIZINE [Suspect]
     Indication: NASAL DISORDER
     Dosage: 1 TABLET DAILY PO
     Route: 048
     Dates: start: 20110620, end: 20110701
  2. CETIRIZINE [Suspect]
     Indication: MULTIPLE ALLERGIES
     Dosage: 1 TABLET DAILY PO
     Route: 048
     Dates: start: 20110620, end: 20110701

REACTIONS (1)
  - PRURITUS [None]
